FAERS Safety Report 12085426 (Version 2)
Quarter: 2016Q1

REPORT INFORMATION
  Report Type: Spontaneous
  Country: TR (occurrence: TR)
  Receive Date: 20160217
  Receipt Date: 20160301
  Transmission Date: 20160526
  Serious: Yes (Other)
  Sender: FDA-Public Use
  Company Number: PHHY2016TR013978

PATIENT
  Age: 26 Year
  Sex: Female

DRUGS (10)
  1. SANDIMMUN NEORAL [Interacting]
     Active Substance: CYCLOSPORINE
     Route: 065
     Dates: start: 2011
  2. RANTUDIL [Interacting]
     Active Substance: ACEMETACIN
     Indication: PRODUCT USED FOR UNKNOWN INDICATION
     Route: 065
  3. NAPROSYN [Concomitant]
     Active Substance: NAPROXEN
     Indication: PRODUCT USED FOR UNKNOWN INDICATION
     Dosage: 750 MG, QD
     Route: 065
  4. SANDIMMUN NEORAL [Interacting]
     Active Substance: CYCLOSPORINE
     Indication: PSORIASIS
     Route: 065
     Dates: start: 2003
  5. ACITRETIN. [Concomitant]
     Active Substance: ACITRETIN
     Indication: PRODUCT USED FOR UNKNOWN INDICATION
     Route: 065
  6. METHOTREXATE [Concomitant]
     Active Substance: METHOTREXATE
     Indication: PRODUCT USED FOR UNKNOWN INDICATION
     Route: 065
  7. SANDIMMUN NEORAL [Interacting]
     Active Substance: CYCLOSPORINE
     Dosage: 200 MG, BID
     Route: 065
     Dates: start: 20150525, end: 201511
  8. SANDIMMUN NEORAL [Interacting]
     Active Substance: CYCLOSPORINE
     Route: 065
     Dates: start: 201511, end: 201602
  9. HUMIRA [Concomitant]
     Active Substance: ADALIMUMAB
     Indication: PRODUCT USED FOR UNKNOWN INDICATION
     Route: 065
  10. CIMZIA [Suspect]
     Active Substance: CERTOLIZUMAB PEGOL
     Indication: PRODUCT USED FOR UNKNOWN INDICATION
     Dosage: UNK, ONCE WITHIN 2 WEEKS
     Route: 065
     Dates: start: 20150525

REACTIONS (13)
  - Suicidal ideation [Unknown]
  - General physical health deterioration [Unknown]
  - Bone pain [Unknown]
  - Akinesia [Unknown]
  - Sacroiliitis [Unknown]
  - Psoriasis [Unknown]
  - Musculoskeletal stiffness [Unknown]
  - Gait disturbance [Not Recovered/Not Resolved]
  - Drug interaction [Unknown]
  - Drug resistance [Unknown]
  - Arthropathy [Unknown]
  - Liver function test increased [Unknown]
  - Oedema [Unknown]

NARRATIVE: CASE EVENT DATE: 201505
